FAERS Safety Report 15516441 (Version 1)
Quarter: 2018Q4

REPORT INFORMATION
  Report Type: Spontaneous
  Country: US (occurrence: US)
  Receive Date: 20181017
  Receipt Date: 20181017
  Transmission Date: 20190205
  Serious: Yes (Death, Hospitalization)
  Sender: FDA-Public Use
  Company Number: US-MYLANLABS-2018M1075620

PATIENT
  Age: 7 Decade
  Sex: Male

DRUGS (1)
  1. CEFOXITIN [Suspect]
     Active Substance: CEFOXITIN SODIUM
     Indication: ANTIBIOTIC PROPHYLAXIS
     Dosage: SINGLE DOSE
     Route: 065

REACTIONS (3)
  - Pseudomembranous colitis [Fatal]
  - Megacolon [Fatal]
  - Septic shock [Fatal]
